FAERS Safety Report 7766241-0 (Version None)
Quarter: 2011Q3

REPORT INFORMATION
  Report Type: 
  Country: None (occurrence: None)
  Receive Date: 20110921
  Receipt Date: 20110909
  Transmission Date: 20111222
  Serious: Yes (Hospitalization, Other)
  Sender: FDA-Public Use
  Company Number: US-ELI_LILLY_AND_COMPANY-US201010001746

PATIENT
  Sex: Female

DRUGS (3)
  1. FORTEO [Suspect]
     Indication: OSTEOPOROSIS
     Dosage: 20 UG, DAILY (1/D)
     Dates: start: 20100921
  2. FORTEO [Suspect]
     Dosage: 20 UG, DAILY (1/D)
  3. FORTEO [Suspect]
     Dosage: 20 UG, QD
     Route: 065

REACTIONS (8)
  - UPPER LIMB FRACTURE [None]
  - APHASIA [None]
  - BLOOD CALCIUM INCREASED [None]
  - OROPHARYNGEAL PAIN [None]
  - FALL [None]
  - DEVICE DISLOCATION [None]
  - DYSPHONIA [None]
  - PAIN IN EXTREMITY [None]
